FAERS Safety Report 11070502 (Version 2)
Quarter: 2015Q3

REPORT INFORMATION
  Report Type: Other
  Country: GB (occurrence: GB)
  Receive Date: 20150427
  Receipt Date: 20150707
  Transmission Date: 20151125
  Serious: Yes (Death, Other)
  Sender: FDA-Public Use
  Company Number: GB-MYLANLABS-2015M1012365

PATIENT

DRUGS (6)
  1. RIFAMPICIN [Suspect]
     Active Substance: RIFAMPIN
     Indication: TUBERCULOSIS
     Dosage: UNK (ANTI-TB TREATMENT: STANDARD DOSES)
     Route: 048
     Dates: start: 20130926, end: 20131023
  2. ETHAMBUTOL [Suspect]
     Active Substance: ETHAMBUTOL HYDROCHLORIDE
     Indication: TUBERCULOSIS
     Dosage: ANTI-TB TREATMENT: STANDARD DOSES)
     Route: 048
     Dates: start: 20130926, end: 20131023
  3. ISONIAZID. [Suspect]
     Active Substance: ISONIAZID
     Indication: TUBERCULOSIS
     Dosage: UNK (ANTI-TB TREATMENT: STANDARD DOSES)
     Route: 048
     Dates: start: 20130926, end: 20131023
  4. PYRAZINAMIDE. [Suspect]
     Active Substance: PYRAZINAMIDE
     Indication: TUBERCULOSIS
     Dosage: UNK (RTG 800MG OD; ANTI-TB TREATMENT: STANDARD DOSES)
     Route: 048
     Dates: start: 20130926, end: 20131023
  5. RALTEGRAVIR. [Suspect]
     Active Substance: RALTEGRAVIR
     Indication: HIV INFECTION
     Dosage: 800 MG, BID (ANTI-TB TREATMENT: STANDARD DOSES, RTG 800MG BD)
     Route: 048
     Dates: start: 20130926, end: 20131023
  6. ATAZANAVIR [Concomitant]
     Active Substance: ATAZANAVIR
     Indication: ILL-DEFINED DISORDER
     Dosage: UNK

REACTIONS (2)
  - Acute hepatic failure [Fatal]
  - Drug-induced liver injury [Not Recovered/Not Resolved]

NARRATIVE: CASE EVENT DATE: 20131020
